FAERS Safety Report 6295944 (Version 17)
Quarter: 2013Q2

REPORT INFORMATION
  Report Type: Spontaneous
  Country: US (occurrence: US)
  Receive Date: 20070425
  Receipt Date: 20130620
  Transmission Date: 20140414
  Serious: Yes (Hospitalization, Other)
  Sender: FDA-Public Use
  Company Number: PHEH2007US05535

PATIENT
  Age: 58 Year
  Sex: Male

DRUGS (49)
  1. AREDIA [Suspect]
  2. ZOMETA [Suspect]
  3. FOSAMAX [Suspect]
  4. TAXOTERE [Concomitant]
  5. PREDNISONE [Concomitant]
  6. LUPRON [Concomitant]
  7. CASODEX [Concomitant]
  8. PROTONIX [Concomitant]
     Dosage: 40 MG, QD
  9. TERAZOSIN [Concomitant]
     Dosage: 5 MG, TID
  10. METFORMIN HYDROCHLORIDE [Concomitant]
  11. GLIPIZIDE [Concomitant]
  12. CIPROFLOXACIN [Concomitant]
  13. KLOR-CON [Concomitant]
  14. ASPIRIN [Concomitant]
     Dosage: 81 MG, QD
  15. FOLIC ACID [Concomitant]
     Dosage: 400 UG, QD
  16. OXYCODONE [Concomitant]
     Dosage: 80 MG, TID
  17. HYDROCODONE [Concomitant]
  18. IBUPROFEN [Concomitant]
  19. GABAPENTIN [Concomitant]
  20. DEXAMETHASONE [Concomitant]
  21. BACLOFEN [Concomitant]
  22. CARISOPRODOL [Concomitant]
  23. LEXAPRO [Concomitant]
  24. LORAZEPAM [Concomitant]
  25. PROCHLORPERAZINE [Concomitant]
  26. LUNESTA [Concomitant]
  27. ADVIL [Concomitant]
  28. CINNAMON [Concomitant]
  29. DHEA [Concomitant]
  30. COENZYME A [Concomitant]
     Dosage: 150 MG, TID
  31. LOTENSIN [Concomitant]
  32. HYTRIN [Concomitant]
  33. EFFEXOR [Concomitant]
  34. LIPITOR                                 /NET/ [Concomitant]
  35. MEGACE [Concomitant]
  36. OXYCONTIN [Concomitant]
  37. VICODIN [Concomitant]
  38. MULTIVITAMIN ^LAPPE^ [Concomitant]
  39. ZOCOR ^DIECKMANN^ [Concomitant]
  40. PERCOCET [Concomitant]
  41. ARANESP [Concomitant]
  42. VITAMIN C [Concomitant]
  43. POTASSIUM GLUCONATE [Concomitant]
  44. NORCO [Concomitant]
  45. SENNA [Concomitant]
  46. GINKGO BILOBA [Concomitant]
  47. NEULASTA [Concomitant]
  48. CORTEF [Concomitant]
     Dosage: 10 MG, UNK
     Route: 048
  49. KETOCONAZOLE [Concomitant]
     Dosage: 200 MG, UNK
     Route: 048

REACTIONS (101)
  - Venous thrombosis [Unknown]
  - Herpes zoster [Unknown]
  - Confusional state [Unknown]
  - Blindness unilateral [Unknown]
  - Hypotension [Unknown]
  - Obstructive uropathy [Unknown]
  - Pancytopenia [Unknown]
  - Neutropenia [Unknown]
  - Spinal osteoarthritis [Unknown]
  - Sepsis [Unknown]
  - Osteonecrosis of jaw [Unknown]
  - Pain [Unknown]
  - Anxiety [Unknown]
  - Injury [Unknown]
  - Loose tooth [Unknown]
  - Infection [Unknown]
  - Bone disorder [Unknown]
  - Haematuria [Unknown]
  - Bone lesion [Unknown]
  - Altered state of consciousness [Unknown]
  - Pyrexia [Recovered/Resolved]
  - Respiratory disorder [Unknown]
  - Cardiac failure congestive [Unknown]
  - Oedema [Unknown]
  - Cystitis [Unknown]
  - Prostate cancer metastatic [Not Recovered/Not Resolved]
  - Perineurial cyst [Unknown]
  - Depression [Unknown]
  - Hyperhidrosis [Unknown]
  - Anaemia [Recovering/Resolving]
  - Syncope [Unknown]
  - Headache [Unknown]
  - Balance disorder [Recovering/Resolving]
  - Cushing^s syndrome [Unknown]
  - Metastases to bone [Unknown]
  - Leukopenia [Unknown]
  - Incontinence [Unknown]
  - Bone pain [Not Recovered/Not Resolved]
  - Muscular weakness [Unknown]
  - Metastases to central nervous system [Unknown]
  - Abdominal pain [Unknown]
  - Muscle spasms [Unknown]
  - Dehydration [Unknown]
  - Central nervous system lesion [Unknown]
  - Cardiac disorder [Unknown]
  - Lethargy [Unknown]
  - Otitis externa [Unknown]
  - Fall [Unknown]
  - Conjunctival haemorrhage [Unknown]
  - Lumbar radiculopathy [Unknown]
  - Transient ischaemic attack [Unknown]
  - Cerebrovascular accident [Unknown]
  - Paraesthesia [Unknown]
  - Angina unstable [Unknown]
  - Gastroenteritis radiation [Unknown]
  - Diverticulum [Unknown]
  - Haemorrhoids [Unknown]
  - Polyp [Unknown]
  - Bladder spasm [Unknown]
  - Nausea [Unknown]
  - Umbilical hernia [Unknown]
  - Brain mass [Unknown]
  - Exophthalmos [Unknown]
  - Periorbital oedema [Unknown]
  - Brain herniation [Unknown]
  - Tongue injury [Unknown]
  - Diarrhoea [Recovering/Resolving]
  - Diplopia [Unknown]
  - Urinary incontinence [Unknown]
  - Pain in extremity [Unknown]
  - Constipation [Unknown]
  - Fatigue [Unknown]
  - Orbital oedema [Unknown]
  - Mucosal inflammation [Unknown]
  - Dyspnoea [Unknown]
  - Rash [Unknown]
  - Neuropathy peripheral [Unknown]
  - Gynaecomastia [Unknown]
  - Musculoskeletal pain [Unknown]
  - Musculoskeletal discomfort [Unknown]
  - Decreased appetite [Unknown]
  - Hypogeusia [Unknown]
  - Chest pain [Unknown]
  - Hot flush [Unknown]
  - Urinary retention [Unknown]
  - Back pain [Unknown]
  - Hypophagia [Unknown]
  - Prostatic acid phosphatase increased [Unknown]
  - Prostatic specific antigen increased [Unknown]
  - Blood chromogranin A increased [Unknown]
  - Osteopenia [Unknown]
  - Vasogenic cerebral oedema [Unknown]
  - Metastases to spine [Unknown]
  - Lumbar spinal stenosis [Unknown]
  - Bladder hypertrophy [Unknown]
  - Blood folate increased [Unknown]
  - Vitamin B12 increased [Unknown]
  - Blood testosterone decreased [Unknown]
  - Genital herpes [Unknown]
  - Candida infection [Unknown]
  - Insomnia [Unknown]
